FAERS Safety Report 20315255 (Version 1)
Quarter: 2022Q1

REPORT INFORMATION
  Report Type: Spontaneous
  Country: US (occurrence: None)
  Receive Date: 20220110
  Receipt Date: 20220110
  Transmission Date: 20220423
  Serious: No
  Sender: FDA-Public Use
  Company Number: US-ROCHE-2801918

PATIENT
  Sex: Female

DRUGS (2)
  1. RITUXAN [Suspect]
     Active Substance: RITUXIMAB
     Indication: Pemphigus
     Route: 041
     Dates: start: 20201207, end: 20201222
  2. RITUXAN [Suspect]
     Active Substance: RITUXIMAB
     Dosage: ONE 1000 MG INFUSION FOR TREATMENT OF RELAPSE
     Route: 041
     Dates: start: 20210330, end: 20210330

REACTIONS (1)
  - Pemphigus [Unknown]
